FAERS Safety Report 12997231 (Version 4)
Quarter: 2017Q1

REPORT INFORMATION
  Report Type: Report from Study
  Country: KR (occurrence: KR)
  Receive Date: 20161205
  Receipt Date: 20170112
  Transmission Date: 20170428
  Serious: Yes (Life-Threatening, Hospitalization, Other)
  Sender: FDA-Public Use
  Company Number: KR-BRISTOL-MYERS SQUIBB COMPANY-BMS-2016-103386

PATIENT
  Age: 67 Year
  Sex: Female
  Weight: 62 kg

DRUGS (9)
  1. TARGIN [Concomitant]
     Active Substance: NALOXONE HYDROCHLORIDE\OXYCODONE HYDROCHLORIDE
     Indication: PRODUCT USED FOR UNKNOWN INDICATION
     Dosage: 40 MG, UNK
     Route: 048
     Dates: start: 20151010, end: 20161126
  2. NIVOLUMAB [Suspect]
     Active Substance: NIVOLUMAB
     Indication: NON-SMALL CELL LUNG CANCER METASTATIC
     Dosage: 186 MG, QD
     Route: 042
     Dates: start: 20160519, end: 20161116
  3. ASIMA [Concomitant]
     Indication: PRODUCT USED FOR UNKNOWN INDICATION
     Dosage: 800 MG, UNK
     Route: 048
     Dates: start: 20161116, end: 20161126
  4. CENTRUM SILVER                     /02363801/ [Concomitant]
     Active Substance: MINERALS\VITAMINS
     Indication: PRODUCT USED FOR UNKNOWN INDICATION
     Dosage: 1 TAB, UNK
     Route: 048
     Dates: start: 20160430, end: 20161126
  5. MEGACE F [Concomitant]
     Indication: PRODUCT USED FOR UNKNOWN INDICATION
     Dosage: 625 MG, UNK
     Route: 048
     Dates: start: 20160922, end: 20161126
  6. CODAEWON FORTE [Concomitant]
     Indication: PRODUCT USED FOR UNKNOWN INDICATION
     Dosage: 60 ML, UNK
     Route: 048
     Dates: start: 20161103, end: 20161126
  7. STOGAR [Concomitant]
     Active Substance: LAFUTIDINE
     Indication: PRODUCT USED FOR UNKNOWN INDICATION
     Dosage: 20 MG, UNK
     Route: 048
     Dates: start: 20161116, end: 20161126
  8. ENCOVER [Concomitant]
     Indication: PRODUCT USED FOR UNKNOWN INDICATION
     Dosage: 400 ML, UNK
     Route: 048
     Dates: start: 20161006, end: 20161126
  9. NIVOLUMAB [Suspect]
     Active Substance: NIVOLUMAB
     Indication: PRODUCT USED FOR UNKNOWN INDICATION
     Dosage: 186 MG, QD
     Route: 042
     Dates: start: 20161215, end: 20161229

REACTIONS (9)
  - Fracture treatment [Recovered/Resolved]
  - Road traffic accident [Recovered/Resolved]
  - Malignant neoplasm progression [Unknown]
  - Respiratory acidosis [Unknown]
  - Mental disorder [Unknown]
  - Dyspnoea [Unknown]
  - Endotracheal intubation [Unknown]
  - Femur fracture [Unknown]
  - Pulmonary oedema [Unknown]

NARRATIVE: CASE EVENT DATE: 20161125
